APPROVED DRUG PRODUCT: LOTRIMIN ULTRA
Active Ingredient: BUTENAFINE HYDROCHLORIDE
Strength: 1%
Dosage Form/Route: CREAM;TOPICAL
Application: N021307 | Product #001
Applicant: BAYER HEALTHCARE LLC
Approved: Dec 7, 2001 | RLD: Yes | RS: Yes | Type: OTC